FAERS Safety Report 15702747 (Version 1)
Quarter: 2018Q4

REPORT INFORMATION
  Report Type: Spontaneous
  Country: US (occurrence: US)
  Receive Date: 20181127
  Receipt Date: 20181127
  Transmission Date: 20190205
  Serious: Yes (Hospitalization)
  Sender: FDA-Public Use
  Company Number: None

PATIENT
  Age: 55 Year
  Sex: Male

DRUGS (1)
  1. SPRYCEL [Suspect]
     Active Substance: DASATINIB
     Indication: CHRONIC MYELOID LEUKAEMIA
     Dosage: 1 TABLET (100 MG) DAILY BY MOUTH
     Route: 048
     Dates: start: 20161212, end: 20181026

REACTIONS (8)
  - Respiratory failure [None]
  - Hepatic cirrhosis [None]
  - Ascites [None]
  - Pleural effusion [None]
  - Generalised oedema [None]
  - Pulmonary oedema [None]
  - Supraventricular tachycardia [None]
  - Non-alcoholic steatohepatitis [None]

NARRATIVE: CASE EVENT DATE: 20181026
